FAERS Safety Report 23568551 (Version 1)
Quarter: 2024Q1

REPORT INFORMATION
  Report Type: Spontaneous
  Country: JP (occurrence: JP)
  Receive Date: 20240227
  Receipt Date: 20240227
  Transmission Date: 20240409
  Serious: Yes (Death, Other)
  Sender: FDA-Public Use
  Company Number: JP-TAKEDA-2024TUS017409

PATIENT
  Age: 45 Year
  Sex: Female

DRUGS (1)
  1. PONATINIB [Suspect]
     Active Substance: PONATINIB
     Indication: B precursor type acute leukaemia
     Dosage: UNK
     Route: 065

REACTIONS (1)
  - B precursor type acute leukaemia [Fatal]
